FAERS Safety Report 10162866 (Version 1)
Quarter: 2014Q2

REPORT INFORMATION
  Report Type: Spontaneous
  Country: US (occurrence: US)
  Receive Date: 20140509
  Receipt Date: 20140509
  Transmission Date: 20141212
  Serious: Yes (Other)
  Sender: FDA-Public Use
  Company Number: US-TEVA-480558USA

PATIENT
  Age: 58 Year
  Sex: Male

DRUGS (2)
  1. CAPECITABINE [Suspect]
     Indication: RECTAL ADENOCARCINOMA
     Dosage: 1650 MG/M2 DAILY IN 2 DIVIDED DOSES ON D1-38
     Route: 065
  2. CAPECITABINE [Suspect]
     Indication: RECTAL ADENOCARCINOMA
     Dosage: THREE CYCLES OF 2000 MG/M2 DAILY ON D1-14 OF 21D CYCLE
     Route: 065

REACTIONS (1)
  - Acute promyelocytic leukaemia [Recovered/Resolved]
